FAERS Safety Report 9620209 (Version 1)
Quarter: 2013Q4

REPORT INFORMATION
  Report Type: Spontaneous
  Country: US (occurrence: US)
  Receive Date: 20131014
  Receipt Date: 20131014
  Transmission Date: 20140711
  Serious: No
  Sender: FDA-Public Use
  Company Number: US-ALLERGAN-1315236US

PATIENT
  Age: 79 Year
  Sex: Male

DRUGS (3)
  1. BRIMONIDINE TARTRATE, 0.2% [Suspect]
     Indication: GLAUCOMA
     Dosage: 1 GTT, UNK
     Route: 047
  2. TRAVATAN [Concomitant]
     Indication: GLAUCOMA
     Dosage: UNK UNK, QHS
     Route: 047
  3. DORZOLAMIDE [Concomitant]
     Indication: GLAUCOMA
     Dosage: UNK

REACTIONS (3)
  - Scleral hyperaemia [Unknown]
  - Lacrimation increased [Unknown]
  - Visual acuity reduced [Unknown]
